FAERS Safety Report 8564552-2 (Version None)
Quarter: 2012Q3

REPORT INFORMATION
  Report Type: 
  Country: None (occurrence: None)
  Receive Date: 20120803
  Receipt Date: 20120727
  Transmission Date: 20120928
  Serious: Yes (Hospitalization, Disabling)
  Sender: FDA-Public Use
  Company Number: DK-009507513-1207DNK005115

PATIENT

DRUGS (13)
  1. IBUMETIN [Concomitant]
     Indication: PAIN
     Dosage: STYRKE: 600 MG
     Route: 048
  2. POTASSIUM CHLORIDE [Concomitant]
     Indication: MINERAL SUPPLEMENTATION
     Dosage: STYRKE: 750 MG
     Route: 048
  3. MOXONIDIN ACTAVIS [Concomitant]
     Indication: HYPERTENSION
     Dosage: STYRKE: 0,2 MG
     Route: 048
  4. ZOCOR [Suspect]
     Indication: HYPERCHOLESTEROLAEMIA
     Dosage: STYRKE: 40 MG
     Route: 048
     Dates: start: 20040101, end: 20090301
  5. POTASSIUM CHLORIDE [Concomitant]
     Dosage: STYRKE: 750 MG
     Route: 048
  6. FUROSEMIDE [Concomitant]
     Dosage: STYRKE: 40 MG
     Route: 048
  7. LOSARTAN POTASSIUM [Concomitant]
     Dosage: STYRKE: 100 MG
     Route: 048
  8. LANSOPRAZOL ORIFARM [Concomitant]
     Indication: GASTROOESOPHAGEAL REFLUX DISEASE
     Dosage: STYRKE: 30 MG
     Route: 048
  9. IBUMETIN [Concomitant]
     Dosage: STYRKE: 600 MG
     Route: 048
  10. LOSARTAN POTASSIUM [Concomitant]
     Indication: HYPERTENSION
     Dosage: STYRKE: 100 MG
     Route: 048
  11. FUROSEMIDE [Concomitant]
     Indication: DIURETIC THERAPY
     Dosage: STYRKE: 40 MG
     Route: 048
  12. AMLODIPINE [Concomitant]
     Indication: HYPERTENSION
     Dosage: STYRKE: 5 MG
     Route: 048
  13. CARVEDILOL [Concomitant]
     Indication: HYPERTENSION
     Dosage: STYRKE: 25 MG
     Route: 048

REACTIONS (5)
  - ARTHRALGIA [None]
  - PAIN IN EXTREMITY [None]
  - GOUT [None]
  - MYALGIA [None]
  - OEDEMA PERIPHERAL [None]
